FAERS Safety Report 9076248 (Version 2)
Quarter: 2013Q1

REPORT INFORMATION
  Report Type: Spontaneous
  Country: US (occurrence: US)
  Receive Date: 20130131
  Receipt Date: 20130221
  Transmission Date: 20140127
  Serious: Yes (Other)
  Sender: FDA-Public Use
  Company Number: US-AMGEN-USASP2013005816

PATIENT
  Age: 60 Year
  Sex: Female
  Weight: 93.88 kg

DRUGS (20)
  1. ENBREL [Suspect]
     Indication: RHEUMATOID ARTHRITIS
     Dosage: 25 MG, 2 TIMES/WK
     Dates: start: 20110801
  2. PRAVACHOL [Concomitant]
     Dosage: ONCE A DAY
  3. GEMFIBROZIL [Concomitant]
     Dosage: 600 MG, BID
  4. VOLTAREN                           /00372301/ [Concomitant]
     Dosage: 75 MG, BID
  5. LANTUS [Concomitant]
     Dosage: 100 UNIT/ML SOLUTION ONCE A DAY
  6. METHOTREXATE SODIUM [Concomitant]
     Indication: RHEUMATOID ARTHRITIS
     Dosage: 2.5 MG, TABLET 6 ONCE WKLY.
  7. SINGULAIR [Concomitant]
     Dosage: 10 MG, 1 TABLET IN THE EVENING ONCE A DAY.
  8. SOMA [Concomitant]
     Dosage: 350 MG,1 TABLET AS NEEDED
  9. PROTONIX [Concomitant]
     Dosage: 1 TABLET TWICE A DAY
  10. HUMALOG [Concomitant]
     Dosage: 100 UNIT/ML SOLUTION AS DIRECTED
  11. DIOVAN [Concomitant]
     Dosage: 80 MG,1 TABLET ONCE A DAY
  12. XANAX [Concomitant]
     Dosage: 1 MG,1 TABLET TWICE A DAY
  13. FISH OIL [Concomitant]
     Dosage: 435 MG,CAPSULE AS DIRECTED
  14. SYNTHYROID [Concomitant]
     Dosage: 50 MCG, 1 TABLET EVERY MORNING ON AN EMPTY STOMACH ONCE A DAY
  15. FOLIC ACID [Concomitant]
     Dosage: 1 MG,1 TABLET ONCE A DAY
  16. LORTAB                             /00607101/ [Concomitant]
     Indication: PAIN
     Dosage: 5 TABLET 1 TABLET AS NEEDED FOR PAIN
  17. PREDNISONE [Concomitant]
     Dosage: 5 MG, 2 QD ONCE A DAY
  18. SYMBICORT [Concomitant]
     Dosage: 80-4.5 MCG/ACT AEROSOL 2 PUFFS TWICE A DAY
  19. RITALIN [Concomitant]
     Dosage: 40 MG,EXTENDED RELEASE 24 HOUR 1 CAPSULE EVERY MORNING ONCE A DAY.
  20. ATORVASTATIN CALCIUM [Concomitant]
     Dosage: 40 MG, QD

REACTIONS (23)
  - Transient ischaemic attack [Not Recovered/Not Resolved]
  - Cerebrovascular accident [Unknown]
  - Periorbital oedema [Not Recovered/Not Resolved]
  - Drug ineffective [Recovered/Resolved]
  - Osteoarthritis [Not Recovered/Not Resolved]
  - Myositis [Unknown]
  - Myalgia [Unknown]
  - Pain [Unknown]
  - Arthralgia [Unknown]
  - Joint swelling [Unknown]
  - Local swelling [Unknown]
  - Musculoskeletal stiffness [Unknown]
  - Joint stiffness [Unknown]
  - Tenderness [Unknown]
  - Epicondylitis [Unknown]
  - Pain in extremity [Unknown]
  - Asthma [Unknown]
  - Cough [Unknown]
  - Emphysema [Unknown]
  - Dyspnoea [Unknown]
  - Muscular weakness [Unknown]
  - Influenza [Unknown]
  - Lung infection [Recovered/Resolved]
